FAERS Safety Report 10605656 (Version 1)
Quarter: 2014Q4

REPORT INFORMATION
  Report Type: Spontaneous
  Country: US (occurrence: US)
  Receive Date: 20141125
  Receipt Date: 20141125
  Transmission Date: 20150529
  Serious: Yes (Death, Hospitalization)
  Sender: FDA-Public Use
  Company Number: PHHY2014US149364

PATIENT
  Age: 59 Year
  Sex: Female

DRUGS (1)
  1. ISONIAZID. [Suspect]
     Active Substance: ISONIAZID
     Indication: LATENT TUBERCULOSIS
     Route: 065

REACTIONS (17)
  - Pyrexia [Fatal]
  - Weight decreased [Fatal]
  - Vasculitis necrotising [Fatal]
  - Leukocytosis [Fatal]
  - Sensory loss [Fatal]
  - Peritoneal haemorrhage [Unknown]
  - Abdominal pain [Fatal]
  - Aneurysm [Unknown]
  - Hepatic haematoma [Unknown]
  - Eosinophilia [Fatal]
  - Renal failure [Unknown]
  - Unresponsive to stimuli [Unknown]
  - Hypotension [Unknown]
  - Muscular weakness [Fatal]
  - Areflexia [Fatal]
  - Hepatic enzyme increased [Fatal]
  - Anaemia [Unknown]
